FAERS Safety Report 6237249-1 (Version None)
Quarter: 2009Q2

REPORT INFORMATION
  Report Type: 
  Country: None (occurrence: None)
  Receive Date: 20090619
  Receipt Date: 20090216
  Transmission Date: 20091009
  Serious: No
  Sender: FDA-Public Use
  Company Number: US-BAYER-200910608BCC

PATIENT
  Age: 84 Year
  Sex: Male
  Weight: 98 kg

DRUGS (12)
  1. ALEVE (CAPLET) [Suspect]
     Indication: ANALGESIA
     Dosage: UNIT DOSE: 220 MG
  2. ALEVE (CAPLET) [Suspect]
     Dosage: UNIT DOSE: 220 MG
     Dates: end: 20090216
  3. ALPRAZOLAM [Concomitant]
     Dosage: UNIT DOSE: 5 MG
  4. OMEPRAZOLE [Concomitant]
     Dosage: TOTAL DAILY DOSE: 20 MG  UNIT DOSE: 20 MG
  5. PAROXETINE HCL [Concomitant]
     Dosage: TOTAL DAILY DOSE: 10 MG  UNIT DOSE: 20 MG
  6. LISINOPRIL [Concomitant]
     Dosage: TOTAL DAILY DOSE: 20 MG  UNIT DOSE: 10 MG
  7. TRIMETHOPRIM [Concomitant]
     Dosage: TOTAL DAILY DOSE: 50 MG  UNIT DOSE: 100 MG
  8. ZOCOR [Concomitant]
  9. NIACIN [Concomitant]
  10. ASCORBIC ACID [Concomitant]
  11. CENTRUM [Concomitant]
  12. ASPIRIN [Concomitant]

REACTIONS (1)
  - PAIN [None]
